FAERS Safety Report 5583723-0 (Version None)
Quarter: 2008Q1

REPORT INFORMATION
  Report Type: 
  Country: None (occurrence: None)
  Receive Date: 20080102
  Receipt Date: 20071214
  Transmission Date: 20080703
  Serious: Yes (Hospitalization)
  Sender: FDA-Public Use
  Company Number: S07-BEL-06123-01

PATIENT
  Age: 42 Year
  Sex: Female

DRUGS (4)
  1. SIPRALEXA(ESCITALOPRAM) [Suspect]
     Dosage: 10 MG QD PO
     Route: 048
     Dates: start: 20071111, end: 20071115
  2. SIPRALEXA(ESCITALOPRAM) [Suspect]
     Dosage: 5 MG QD PO
     Route: 048
     Dates: start: 20071108, end: 20071110
  3. OMEPRAZOLE [Concomitant]
  4. INSIDON ^CIBA-GEIGY^ (OPIPRAMOL HYDROCHLORIDE) [Concomitant]

REACTIONS (6)
  - DRUG INTERACTION [None]
  - DYSKINESIA [None]
  - HYPERREFLEXIA [None]
  - MYOCLONUS [None]
  - SEROTONIN SYNDROME [None]
  - SPEECH DISORDER [None]
